FAERS Safety Report 8442490-3 (Version None)
Quarter: 2012Q2

REPORT INFORMATION
  Report Type: 
  Country: None (occurrence: None)
  Receive Date: 20120615
  Receipt Date: 20111208
  Transmission Date: 20120825
  Serious: No
  Sender: FDA-Public Use
  Company Number: US-NOVEN-11US003763

PATIENT
  Sex: Male

DRUGS (6)
  1. PROVENTIL                          /00139501/ [Concomitant]
     Route: 048
  2. DAYTRANA [Suspect]
     Indication: ATTENTION DEFICIT/HYPERACTIVITY DISORDER
     Dosage: 15 MG, QD
     Route: 062
     Dates: start: 20110901
  3. RANITIDINE [Concomitant]
     Route: 048
  4. ZOLOFT [Concomitant]
     Route: 048
  5. DAYTRANA [Suspect]
     Dosage: 10 MG, QD
     Route: 062
     Dates: start: 20110829, end: 20110901
  6. ZYRTEC [Concomitant]
     Route: 048

REACTIONS (2)
  - APPLICATION SITE PAIN [None]
  - APPLICATION SITE RASH [None]
